FAERS Safety Report 7399069-4 (Version None)
Quarter: 2011Q1

REPORT INFORMATION
  Report Type: 
  Country: None (occurrence: None)
  Receive Date: 20110328
  Receipt Date: 20110311
  Transmission Date: 20110831
  Serious: Yes (Other)
  Sender: FDA-Public Use
  Company Number: 2011P1004507

PATIENT
  Age: 75 Year
  Sex: Female

DRUGS (13)
  1. CEPHALEXIN [Concomitant]
  2. WARFARIN SODIUM [Suspect]
     Indication: THROMBOSIS PROPHYLAXIS
     Dosage: SEE IMAGE: PO
     Route: 048
     Dates: start: 20110217, end: 20110304
  3. WARFARIN SODIUM [Suspect]
     Indication: THROMBOSIS PROPHYLAXIS
     Dosage: SEE IMAGE: PO
     Route: 048
     Dates: start: 20110201, end: 20110201
  4. WARFARIN SODIUM [Suspect]
     Indication: THROMBOSIS PROPHYLAXIS
     Dosage: SEE IMAGE: PO
     Route: 048
     Dates: start: 20110212, end: 20110215
  5. PRAMIPEXOLE DIHYDROCHLORIDE [Concomitant]
  6. DILAUDID [Concomitant]
  7. POLYSACCHARIDE [Concomitant]
  8. HYDROCHLOROTHIAZIDE AND LOSARTAN [Concomitant]
  9. NIFEREX-150 (IRON) [Concomitant]
  10. CITALOPRAM HYDROBROMIDE [Concomitant]
  11. ZOLPIDEM [Concomitant]
  12. PRADAXA [Suspect]
     Dosage: 150 MG
     Dates: start: 20110304
  13. CRESTOR [Concomitant]

REACTIONS (8)
  - DRUG HYPERSENSITIVITY [None]
  - FEELING OF BODY TEMPERATURE CHANGE [None]
  - INTERNATIONAL NORMALISED RATIO INCREASED [None]
  - INCORRECT DOSE ADMINISTERED [None]
  - HYPOAESTHESIA FACIAL [None]
  - HYPOAESTHESIA [None]
  - DRUG PRESCRIBING ERROR [None]
  - ASTHENIA [None]
